FAERS Safety Report 4376871-4 (Version None)
Quarter: 2004Q2

REPORT INFORMATION
  Report Type: 
  Country: None (occurrence: None)
  Receive Date: 20040608
  Receipt Date: 20030605
  Transmission Date: 20050107
  Serious: Yes (Hospitalization, Other)
  Sender: FDA-Public Use
  Company Number: 200311928BCC

PATIENT
  Age: 77 Year
  Sex: Male
  Weight: 90.7194 kg

DRUGS (3)
  1. ALEVE [Suspect]
     Indication: PAIN IN EXTREMITY
     Dosage: 440 MG, TOTAL DAILY, ORAL
     Route: 048
     Dates: end: 20030530
  2. DOXZOSIN [Concomitant]
  3. DYAZIDE [Concomitant]

REACTIONS (3)
  - GASTRIC HAEMORRHAGE [None]
  - GASTROINTESTINAL ULCER HAEMORRHAGE [None]
  - RECTAL HAEMORRHAGE [None]
